FAERS Safety Report 11306194 (Version 2)
Quarter: 2015Q3

REPORT INFORMATION
  Report Type: Spontaneous
  Country: US (occurrence: US)
  Receive Date: 20150723
  Receipt Date: 20150723
  Transmission Date: 20151125
  Serious: No
  Sender: FDA-Public Use
  Company Number: US-FRESENIUS KABI-FK201503479

PATIENT

DRUGS (1)
  1. XYLOCAINE WITH EPINEPHRINE [Suspect]
     Active Substance: EPINEPHRINE BITARTRATE\LIDOCAINE HYDROCHLORIDE
     Indication: PERIOPERATIVE ANALGESIA
     Route: 065
     Dates: start: 20150717

REACTIONS (1)
  - Incision site haemorrhage [Unknown]

NARRATIVE: CASE EVENT DATE: 20150717
